FAERS Safety Report 21398304 (Version 1)
Quarter: 2022Q3

REPORT INFORMATION
  Report Type: Report from Study
  Country: US (occurrence: US)
  Receive Date: 20220930
  Receipt Date: 20220930
  Transmission Date: 20221027
  Serious: Yes (Hospitalization)
  Sender: FDA-Public Use
  Company Number: US-ALNYLAM PHARMACEUTICALS, INC.-ALN-2022-003405

PATIENT

DRUGS (1)
  1. ONPATTRO [Suspect]
     Active Substance: PATISIRAN SODIUM
     Indication: Product used for unknown indication
     Dosage: 27 MILLIGRAM, Q3W
     Route: 042

REACTIONS (4)
  - Tremor [Unknown]
  - Pneumonia [Unknown]
  - Cardiac failure congestive [Unknown]
  - Product dose omission issue [Unknown]
